FAERS Safety Report 6220121-0 (Version None)
Quarter: 2009Q2

REPORT INFORMATION
  Report Type: 
  Country: None (occurrence: None)
  Receive Date: 20090609
  Receipt Date: 20090527
  Transmission Date: 20091009
  Serious: Yes (Hospitalization)
  Sender: FDA-Public Use
  Company Number: US-ELI_LILLY_AND_COMPANY-US200906000047

PATIENT
  Age: 52 Year
  Sex: Female

DRUGS (6)
  1. HUMALOG MIX 75/25 [Suspect]
     Indication: HYPERGLYCAEMIA
     Dosage: UNK, UNK
     Dates: start: 20080507, end: 20080521
  2. HUMULIN 70/30 [Suspect]
  3. BENICAR [Concomitant]
  4. MICARDIS [Concomitant]
  5. METFORMIN HYDROCHLORIDE [Concomitant]
  6. ADVAIR HFA [Concomitant]

REACTIONS (1)
  - HYPERVENTILATION [None]
